FAERS Safety Report 5104516-4 (Version None)
Quarter: 2006Q3

REPORT INFORMATION
  Report Type: 
  Country: None (occurrence: None)
  Receive Date: 20060914
  Receipt Date: 20060901
  Transmission Date: 20061208
  Serious: Yes (Other)
  Sender: FDA-Public Use
  Company Number: PHBS2006CH13256

PATIENT
  Age: 56 Year
  Sex: Female

DRUGS (2)
  1. FEMARA [Suspect]
     Indication: BREAST CANCER FEMALE
     Dates: start: 20050101, end: 20060201
  2. TAMOXIFEN CITRATE [Suspect]
     Indication: BREAST CANCER FEMALE
     Dates: start: 20000401, end: 20050101

REACTIONS (2)
  - ARTHRALGIA [None]
  - OSTEONECROSIS [None]
